FAERS Safety Report 20903970 (Version 1)
Quarter: 2022Q2

REPORT INFORMATION
  Report Type: Report from Study
  Country: IT (occurrence: IT)
  Receive Date: 20220602
  Receipt Date: 20220602
  Transmission Date: 20220721
  Serious: Yes (Hospitalization)
  Sender: FDA-Public Use
  Company Number: None

PATIENT
  Age: 22 Year
  Sex: Female

DRUGS (6)
  1. GABAPENTIN [Suspect]
     Active Substance: GABAPENTIN
     Dosage: UNIT DOSE : 1700 MG,ADDITIONAL INFORMATION : OVERDOSE
     Route: 048
     Dates: start: 20210924, end: 20210924
  2. QUETIAPINE FUMARATE [Suspect]
     Active Substance: QUETIAPINE FUMARATE
     Dosage: UNIT DOSE : 250 MG,ADDITIONAL INFORMATION : ABUSE / MISUSE
     Route: 048
     Dates: start: 20210924, end: 20210924
  3. ATARAX [Suspect]
     Active Substance: HYDROXYZINE HYDROCHLORIDE
     Dosage: UNIT DOSE : 8 DF, ADDITIONAL INFORMATION : ABUSE / MISUSE
     Route: 048
     Dates: start: 20210924, end: 20210924
  4. PAROXETINE HYDROCHLORIDE [Suspect]
     Active Substance: PAROXETINE HYDROCHLORIDE
     Dosage: FORM STRENGTH : 20 MG , UNIT DOSE : 12 DF,  ADDITIONAL INFORMATION : OVERDOSE
     Route: 048
     Dates: start: 20210924, end: 20210924
  5. TRAZODONE HYDROCHLORIDE [Suspect]
     Active Substance: TRAZODONE HYDROCHLORIDE
     Dosage: FORM STRENGTH  : 50 MG ,UNIT DOSE : 10 DF , ADDITIONAL INFORMATION : ABUSE / MISUSE
     Route: 048
     Dates: start: 20210924, end: 20210924
  6. LYRICA [Suspect]
     Active Substance: PREGABALIN
     Dosage: UNIT DOSE : 250 MG, ABUSE / MISUSE
     Route: 048
     Dates: start: 20210924, end: 20210924

REACTIONS (3)
  - Bradyphrenia [Unknown]
  - Sopor [Unknown]
  - Suicide attempt [Unknown]

NARRATIVE: CASE EVENT DATE: 20210924
